FAERS Safety Report 13817042 (Version 2)
Quarter: 2017Q4

REPORT INFORMATION
  Report Type: Spontaneous
  Country: US (occurrence: US)
  Receive Date: 20170731
  Receipt Date: 20171121
  Transmission Date: 20180320
  Serious: No
  Sender: FDA-Public Use
  Company Number: US-JNJFOC-20170717619

PATIENT
  Sex: Female
  Weight: 95.26 kg

DRUGS (1)
  1. INVEGA SUSTENNA [Suspect]
     Active Substance: PALIPERIDONE PALMITATE
     Indication: SCHIZOPHRENIA
     Route: 030

REACTIONS (5)
  - Syringe issue [Unknown]
  - Off label use [Unknown]
  - Accidental exposure to product [Unknown]
  - Device malfunction [Unknown]
  - Product use issue [Unknown]
